FAERS Safety Report 8847963 (Version 5)
Quarter: 2013Q1

REPORT INFORMATION
  Report Type: Report from Study
  Country: CA (occurrence: CA)
  Receive Date: 20121018
  Receipt Date: 20130227
  Transmission Date: 20140127
  Serious: Yes (Other)
  Sender: FDA-Public Use
  Company Number: CA-ROCHE-1094451

PATIENT
  Age: 51 None
  Sex: Female
  Weight: 54.93 kg

DRUGS (15)
  1. AVASTIN [Suspect]
     Indication: GLIOBLASTOMA
     Route: 042
     Dates: start: 20120531
  2. AVASTIN [Suspect]
     Route: 042
     Dates: start: 20120627, end: 20120711
  3. AVASTIN [Suspect]
     Route: 042
     Dates: start: 20120828
  4. AVASTIN [Suspect]
     Route: 042
     Dates: start: 20120918
  5. AVASTIN [Suspect]
     Route: 042
     Dates: start: 20121227
  6. DECADRON [Concomitant]
  7. DIPHENHYDRAMINE HCL [Concomitant]
     Indication: PREMEDICATION
     Route: 048
     Dates: start: 20121004, end: 20121004
  8. DIPHENHYDRAMINE HCL [Concomitant]
     Route: 048
     Dates: start: 20120531
  9. ACETAMINOPHEN [Concomitant]
     Indication: PREMEDICATION
     Route: 048
     Dates: start: 20121004, end: 20121004
  10. ACETAMINOPHEN [Concomitant]
     Route: 048
     Dates: start: 20120531
  11. METHYLPREDNISOLONE [Concomitant]
     Indication: PREMEDICATION
     Route: 042
     Dates: start: 20121004, end: 20121004
  12. METHYLPREDNISOLONE [Concomitant]
     Route: 042
     Dates: start: 20120531
  13. BENADRYL [Concomitant]
     Indication: PREMEDICATION
     Route: 048
     Dates: start: 20120531
  14. TYLENOL [Concomitant]
     Indication: PREMEDICATION
     Route: 048
     Dates: start: 20120531
  15. SOLU-MEDROL [Concomitant]
     Indication: PREMEDICATION
     Route: 042
     Dates: start: 20120531

REACTIONS (9)
  - Balance disorder [Unknown]
  - Deep vein thrombosis [Not Recovered/Not Resolved]
  - Red cell distribution width increased [Unknown]
  - Hepatic enzyme increased [Unknown]
  - Dyspnoea [Unknown]
  - Decreased appetite [Unknown]
  - Fatigue [Unknown]
  - Asthenia [Not Recovered/Not Resolved]
  - Blood glucose increased [Unknown]
